FAERS Safety Report 5463208-2 (Version None)
Quarter: 2007Q3

REPORT INFORMATION
  Report Type: 
  Country: None (occurrence: None)
  Receive Date: 20070920
  Receipt Date: 20070912
  Transmission Date: 20080115
  Serious: Yes (Congenital Anomaly, Other)
  Sender: FDA-Public Use
  Company Number: B0468791A

PATIENT
  Age: 1 Day
  Sex: Male
  Weight: 3.4 kg

DRUGS (10)
  1. LAMIVUDINE + ZIDOVUDINE [Suspect]
     Indication: HIV INFECTION
     Dosage: 600MG PER DAY
     Dates: start: 20040130, end: 20040601
  2. KALETRA [Suspect]
     Indication: HIV INFECTION
     Dosage: 600MG SEE DOSAGE TEXT
     Dates: start: 20040601
  3. NELFINAVIR MESILATE [Suspect]
     Indication: HIV INFECTION
     Dosage: 2500MG PER DAY
     Dates: start: 20040130, end: 20040720
  4. VIREAD [Suspect]
     Indication: HIV INFECTION
     Dosage: 300MG PER DAY
     Dates: start: 20040601, end: 20040720
  5. ZIDOVUDINE [Suspect]
     Indication: HIV INFECTION
     Dates: start: 20040601, end: 20040910
  6. TRUVADA [Suspect]
     Indication: HIV INFECTION
     Dates: start: 20040601, end: 20040720
  7. CRIXIVAN [Suspect]
     Dates: start: 20040601, end: 20040720
  8. RETROVIR [Suspect]
  9. VIRACEPT [Suspect]
     Dates: start: 20040130, end: 20040601
  10. FOLIC ACID [Concomitant]
     Route: 015

REACTIONS (6)
  - ABDOMINAL DISTENSION [None]
  - ABDOMINAL HERNIA [None]
  - CARDIAC MURMUR [None]
  - CONGENITAL ANOMALY [None]
  - CRYPTORCHISM [None]
  - DRUG EXPOSURE DURING PREGNANCY [None]
